FAERS Safety Report 4322754-5 (Version None)
Quarter: 2004Q1

REPORT INFORMATION
  Report Type: 
  Country: None (occurrence: None)
  Receive Date: 20040324
  Receipt Date: 20040312
  Transmission Date: 20041129
  Serious: Yes (Other)
  Sender: FDA-Public Use
  Company Number: GB-GLAXOSMITHKLINE-B0326590A

PATIENT

DRUGS (3)
  1. ZIAGEN [Suspect]
  2. OTHER ANTIRETROVIRALS [Concomitant]
  3. PRAVASTATIN [Concomitant]

REACTIONS (1)
  - AMYOTROPHIC LATERAL SCLEROSIS [None]
